FAERS Safety Report 26125144 (Version 1)
Quarter: 2025Q4

REPORT INFORMATION
  Report Type: Spontaneous
  Country: US (occurrence: US)
  Receive Date: 20251205
  Receipt Date: 20251205
  Transmission Date: 20260117
  Serious: Yes (Death, Other)
  Sender: AMGEN
  Company Number: US-AMGEN-USASP2025238441

PATIENT

DRUGS (2)
  1. BLINATUMOMAB [Suspect]
     Active Substance: BLINATUMOMAB
     Indication: Precursor T-lymphoblastic leukaemia acute
     Dosage: UNK
     Route: 065
  2. RITUXIMAB [Suspect]
     Active Substance: RITUXIMAB
     Indication: Prophylaxis
     Dosage: UNK
     Route: 065

REACTIONS (22)
  - Death [Fatal]
  - Venoocclusive liver disease [Fatal]
  - Acute graft versus host disease [Fatal]
  - Multiple organ dysfunction syndrome [Fatal]
  - Adenovirus infection [Fatal]
  - Transplantation complication [Fatal]
  - Pulmonary toxicity [Unknown]
  - Cardiotoxicity [Unknown]
  - Idiopathic intracranial hypertension [Unknown]
  - Posterior reversible encephalopathy syndrome [Unknown]
  - Gastrointestinal haemorrhage [Unknown]
  - Retinal haemorrhage [Unknown]
  - Stevens-Johnson syndrome [Unknown]
  - Pneumonia fungal [Unknown]
  - Cytomegalovirus infection [Unknown]
  - Epstein-Barr virus infection [Unknown]
  - BK virus infection [Unknown]
  - Varicella zoster virus infection [Unknown]
  - Human herpesvirus 6 infection [Unknown]
  - Microangiopathy [Unknown]
  - Haematoma [Unknown]
  - Off label use [Unknown]
